FAERS Safety Report 6700875-7 (Version None)
Quarter: 2010Q2

REPORT INFORMATION
  Report Type: 
  Country: None (occurrence: None)
  Receive Date: 20100428
  Receipt Date: 20100416
  Transmission Date: 20101027
  Serious: No
  Sender: FDA-Public Use
  Company Number: US-B.I. PHARMACEUTICALS,INC./RIDGEFIELD-2010-BP-04457BP

PATIENT
  Sex: Male

DRUGS (5)
  1. MOBIC [Suspect]
     Indication: BACK PAIN
     Dosage: 15 MG
     Route: 048
     Dates: start: 20100125, end: 20100219
  2. SKELAXIN [Suspect]
     Indication: BACK PAIN
     Dosage: 3200 MG
     Route: 048
     Dates: start: 20100125
  3. SKELAXIN [Suspect]
     Dosage: 2400 MG
     Route: 048
     Dates: start: 20100101
  4. DULOXETINE HYDROCHLORIDE [Suspect]
     Indication: BACK PAIN
     Dosage: 30 MG
     Route: 048
     Dates: start: 20100101, end: 20100101
  5. DULOXETINE HYDROCHLORIDE [Suspect]
     Route: 048

REACTIONS (6)
  - ADVERSE DRUG REACTION [None]
  - BURNING SENSATION [None]
  - FEELING ABNORMAL [None]
  - MUSCULAR WEAKNESS [None]
  - MUSCULOSKELETAL DISCOMFORT [None]
  - OEDEMA PERIPHERAL [None]
